FAERS Safety Report 17946529 (Version 1)
Quarter: 2020Q2

REPORT INFORMATION
  Report Type: Spontaneous
  Country: FR (occurrence: FR)
  Receive Date: 20200626
  Receipt Date: 20200626
  Transmission Date: 20200714
  Serious: Yes (Hospitalization)
  Sender: FDA-Public Use
  Company Number: FR-AUROBINDO-AUR-APL-2020-030899

PATIENT
  Age: 32 Year
  Sex: Female
  Weight: 54 kg

DRUGS (6)
  1. BUDESONIDE EG [Suspect]
     Active Substance: BUDESONIDE
     Indication: PREMEDICATION
     Dosage: 1 DOSAGE FORM, 1 TOTAL
     Route: 055
     Dates: start: 20181120, end: 20181120
  2. PROPOFOL PANPHARMA [Suspect]
     Active Substance: PROPOFOL
     Indication: ANAESTHESIA
     Dosage: 200 MILLIGRAM, 1 TOTAL
     Route: 042
     Dates: start: 20181120, end: 20181120
  3. RAPIFEN (IBUPROFEN) [Suspect]
     Active Substance: IBUPROFEN
     Indication: ANALGESIC THERAPY
     Dosage: 500 MILLIGRAM, 1 TOTAL
     Route: 042
     Dates: start: 20181120, end: 20181120
  4. IPRATROPIUM ARROW [Suspect]
     Active Substance: IPRATROPIUM
     Indication: PRODUCT USED FOR UNKNOWN INDICATION
     Dosage: 1 DOSAGE FORM, 1 TOTAL
     Route: 055
     Dates: start: 20181120, end: 20181120
  5. TERBUTALINE ARROW [Suspect]
     Active Substance: TERBUTALINE
     Indication: PREMEDICATION
     Dosage: 1 DOSAGE FORM, 1 TOTAL
     Route: 055
     Dates: start: 20181120, end: 20181120
  6. PARACETAMOL KABI [Suspect]
     Active Substance: ACETAMINOPHEN
     Indication: PRODUCT USED FOR UNKNOWN INDICATION
     Dosage: 1 GRAM, 1 TOTAL
     Route: 065
     Dates: start: 20181120, end: 20181120

REACTIONS (2)
  - Face oedema [Recovering/Resolving]
  - Flushing [Recovering/Resolving]

NARRATIVE: CASE EVENT DATE: 20181120
